FAERS Safety Report 17636270 (Version 1)
Quarter: 2020Q2

REPORT INFORMATION
  Report Type: Spontaneous
  Country: US (occurrence: US)
  Receive Date: 20200403
  Receipt Date: 20200403
  Transmission Date: 20200713
  Serious: Yes (Hospitalization)
  Sender: FDA-Public Use
  Company Number: None

PATIENT
  Age: 76 Year
  Sex: Female

DRUGS (2)
  1. INLYTA [Concomitant]
     Active Substance: AXITINIB
  2. VOTRIENT [Suspect]
     Active Substance: PAZOPANIB HYDROCHLORIDE
     Indication: RENAL CANCER
     Route: 048

REACTIONS (4)
  - Dysphonia [None]
  - Gastrointestinal disorder [None]
  - Abdominal pain upper [None]
  - Oral pain [None]

NARRATIVE: CASE EVENT DATE: 201911
